FAERS Safety Report 9363363 (Version 3)
Quarter: 2014Q1

REPORT INFORMATION
  Report Type: Report from Study
  Country: BR (occurrence: BR)
  Receive Date: 20130624
  Receipt Date: 20140311
  Transmission Date: 20141002
  Serious: Yes (Hospitalization)
  Sender: FDA-Public Use
  Company Number: BR-ROCHE-1000700

PATIENT
  Sex: Female
  Weight: 83 kg

DRUGS (10)
  1. MABTHERA [Suspect]
     Indication: RHEUMATOID ARTHRITIS
     Route: 042
     Dates: start: 20090701, end: 200907
  2. ACTEMRA [Suspect]
     Indication: RHEUMATOID ARTHRITIS
     Dosage: LATEST INFUSION ON 12/FEB/2014
     Route: 042
     Dates: start: 20130928
  3. PREDSIM [Concomitant]
     Route: 065
  4. NAPROXEN [Concomitant]
     Route: 065
  5. REUQUINOL [Concomitant]
     Route: 065
  6. METHOTREXATE [Concomitant]
  7. ORENCIA [Concomitant]
  8. NABUMETONE [Concomitant]
  9. RETINOL [Concomitant]
  10. IMURAN [Concomitant]

REACTIONS (8)
  - Uterine leiomyoma [Unknown]
  - General physical health deterioration [Unknown]
  - Pyrexia [Unknown]
  - Pain [Unknown]
  - Bedridden [Unknown]
  - Pruritus [Unknown]
  - Rash erythematous [Unknown]
  - Gastroenteritis [Not Recovered/Not Resolved]
